FAERS Safety Report 16052522 (Version 2)
Quarter: 2019Q1

REPORT INFORMATION
  Report Type: Spontaneous
  Country: PL (occurrence: PL)
  Receive Date: 20190308
  Receipt Date: 20190315
  Transmission Date: 20190418
  Serious: Yes (Other)
  Sender: FDA-Public Use
  Company Number: PL-009507513-1903POL002578

PATIENT
  Age: 64 Year
  Sex: Male
  Weight: 123 kg

DRUGS (7)
  1. BICARDEF [Concomitant]
     Indication: HYPERTENSION
     Dosage: 5 MILLIGRAM, Q24H
     Route: 048
  2. ZOXON [Concomitant]
     Active Substance: DOXAZOSIN\DOXAZOSIN MESYLATE
     Indication: HYPERTENSION
     Dosage: 4 MILLIGRAM, Q24H
     Route: 048
  3. SIOFOR [Concomitant]
     Active Substance: METFORMIN HYDROCHLORIDE
     Indication: TYPE 2 DIABETES MELLITUS
     Dosage: AVERAGE DOSE: 2000 MG
     Route: 048
  4. JANUVIA [Suspect]
     Active Substance: SITAGLIPTIN PHOSPHATE
     Indication: TYPE 2 DIABETES MELLITUS
     Dosage: 100 MILLIGRAM
     Route: 048
     Dates: start: 201805, end: 201812
  5. VALSACOR [Concomitant]
     Active Substance: VALSARTAN
     Indication: HYPERTENSION
     Dosage: 160 MILLIGRAM, Q24H
     Route: 048
  6. WARFIN [Concomitant]
     Active Substance: WARFARIN
     Indication: CARDIAC VALVE DISEASE
     Dosage: 1.5 MILLIGRAM, Q24H
     Route: 048
  7. ASPIRIN. [Concomitant]
     Active Substance: ASPIRIN
     Indication: CARDIAC VALVE DISEASE
     Dosage: 75 MILLIGRAM, Q24H
     Route: 048

REACTIONS (1)
  - Blood triglycerides increased [Unknown]

NARRATIVE: CASE EVENT DATE: 201810
